FAERS Safety Report 7070530 (Version 3)
Quarter: 2013Q3

REPORT INFORMATION
  Report Type: Report from Study
  Country: NL (occurrence: NL)
  Receive Date: 20090803
  Receipt Date: 20130826
  Transmission Date: 20140515
  Serious: Yes (Life-Threatening, Hospitalization)
  Sender: FDA-Public Use
  Company Number: NL-ROCHE-641220

PATIENT
  Age: 76 Year
  Sex: 0
  Weight: 79 kg

DRUGS (15)
  1. CAPECITABINE [Suspect]
     Indication: GASTRIC CANCER
     Dosage: DOSE PER PROTOCOL. ORALLY IN 2 EQUALLY DIVIDED DOSES, 1000 MG/M2 BID, DAY 1-14 EVERY 3 WEEKS.
     Route: 048
  2. CAPECITABINE [Suspect]
     Dosage: DOSE RESUCED. DATE OF LAST DOSE OF CHEMOTHERAPY BEFORE EVENT: 10 FEBRUARY 2009.
     Route: 048
  3. CAPECITABINE [Suspect]
     Dosage: LAST DOSE PRIOR TO SAE:26-06-2009
     Route: 048
  4. CISPLATIN [Suspect]
     Indication: GASTRIC CANCER
     Route: 042
  5. CISPLATIN [Suspect]
     Dosage: DOSE REDUCED. DATE OF LAST DOSE OF CHEMOTHERAPY BEFORE EVENT: 10 FEBRUARY 2009.
     Route: 042
  6. CISPLATIN [Suspect]
     Dosage: LAST DOSE PRIOR TO SAE:26-06-2009
     Route: 042
  7. EPIRUBICIN [Suspect]
     Indication: GASTRIC CANCER
     Route: 042
  8. EPIRUBICIN [Suspect]
     Dosage: DOSE REDUCED. DATE OF LAST DOSE OF CHEMOTHERAPY BEFORE EVENT: 10 FEBRUARY 2009.
     Route: 042
  9. EPIRUBICIN [Suspect]
     Dosage: LAST DOSE PRIOR TO SAE:26-06-2009
     Route: 042
  10. METOCLOPRAMIDE [Concomitant]
     Dosage: DOSE: 3 DD 10 MG.
     Route: 042
  11. METOCLOPRAMIDE [Concomitant]
     Route: 065
  12. DALTEPARIN [Concomitant]
     Dosage: DOSE: 2-500 1 DD
     Route: 058
  13. NEXIUM [Concomitant]
     Dosage: DRUG NAME: NEXIUM 40 MG
     Route: 065
  14. AUGMENTIN [Concomitant]
     Route: 065
  15. PARACETAMOL [Concomitant]
     Route: 065

REACTIONS (3)
  - Malaise [Recovered/Resolved]
  - Pyrexia [Recovered/Resolved]
  - Radiation oesophagitis [Unknown]
